FAERS Safety Report 15215676 (Version 1)
Quarter: 2018Q3

REPORT INFORMATION
  Report Type: Spontaneous
  Country: US (occurrence: US)
  Receive Date: 20180703
  Receipt Date: 20180703
  Transmission Date: 20181010
  Serious: No
  Sender: FDA-Public Use
  Company Number: None

PATIENT
  Age: 52 Year
  Sex: Female
  Weight: 55.8 kg

DRUGS (6)
  1. CULTERELLE PROBIOTIC [Concomitant]
  2. ANTIHISTAMINES [Concomitant]
     Active Substance: ANTIHISTAMINES NOS
  3. HAIR, NAILS, SKIN VITAMIN (NATURE^S BOUNTY) [Concomitant]
  4. CRANBERRRY SUPPLEMENT [Concomitant]
  5. REFRESH OPTIVE MEGA?3 [Suspect]
     Active Substance: CARBOXYMETHYLCELLULOSE SODIUM\GLYCERIN\POLYSORBATE 80
     Indication: DRY EYE
     Dosage: ?          QUANTITY:1 GTT DROP(S);?
     Route: 047
     Dates: start: 20180614, end: 20180702
  6. INHALED STEROID [Concomitant]

REACTIONS (2)
  - Product label confusion [None]
  - Reaction to preservatives [None]

NARRATIVE: CASE EVENT DATE: 20180702
